FAERS Safety Report 9338946 (Version 1)
Quarter: 2013Q2

REPORT INFORMATION
  Report Type: Spontaneous
  Country: GB (occurrence: GB)
  Receive Date: 20130610
  Receipt Date: 20130610
  Transmission Date: 20140414
  Serious: Yes (Other)
  Sender: FDA-Public Use
  Company Number: PHHY2013GB056238

PATIENT
  Age: 63 Year
  Sex: Female
  Weight: 68.48 kg

DRUGS (1)
  1. IRBESARTAN [Suspect]
     Indication: HYPERTENSION
     Dosage: 150 MG
     Route: 048
     Dates: start: 20121030, end: 20130328

REACTIONS (2)
  - Herpes zoster [Recovered/Resolved]
  - Angioedema [Recovered/Resolved]
